FAERS Safety Report 8780432 (Version 1)
Quarter: 2012Q4

REPORT INFORMATION
  Report Type: Spontaneous
  Country: US (occurrence: None)
  Receive Date: 20120830
  Receipt Date: 20120830
  Transmission Date: 20130627
  Serious: Yes (Hospitalization)
  Sender: FDA-Public Use
  Company Number: AUR-APL-2012-03666

PATIENT
  Age: 56 Year
  Sex: Male

DRUGS (5)
  1. SIMVASTATIN (SIMVASTATIN) [Suspect]
     Indication: ISCHAEMIC HEART DISEASE
     Dosage: (20 mg, 1 D)
     Route: 048
     Dates: start: 20111122, end: 20120220
  2. SIMVASTATIN (SIMVASTATIN) [Suspect]
     Indication: ISCHAEMIC HEART DISEASE
     Dosage: (40 mg, 1 D), Unknown
     Dates: start: 20120220, end: 20120320
  3. TAHOR [Suspect]
     Route: 048
     Dates: start: 20110804, end: 20111115
  4. CRESTOR [Suspect]
  5. CRESTOR [Suspect]
     Dates: start: 20120516

REACTIONS (5)
  - Neuralgia [None]
  - Neck pain [None]
  - Headache [None]
  - Axonal neuropathy [None]
  - Drug intolerance [None]
